FAERS Safety Report 23621404 (Version 1)
Quarter: 2024Q1

REPORT INFORMATION
  Report Type: Spontaneous
  Country: US (occurrence: None)
  Receive Date: 20240311
  Receipt Date: 20240311
  Transmission Date: 20240409
  Serious: Yes (Death, Hospitalization)
  Sender: FDA-Public Use
  Company Number: None

PATIENT
  Age: 51 Year
  Sex: Female

DRUGS (18)
  1. AMBRISENTAN [Suspect]
     Active Substance: AMBRISENTAN
     Indication: Pulmonary arterial hypertension
     Dosage: FREQUENCY : DAILY;?
     Route: 048
     Dates: start: 20230724, end: 20240301
  2. VELETRI [Suspect]
     Active Substance: EPOPROSTENOL
  3. METOLAZONE [Concomitant]
     Active Substance: METOLAZONE
  4. bumetandie [Concomitant]
  5. TRAMADOL [Concomitant]
     Active Substance: TRAMADOL\TRAMADOL HYDROCHLORIDE
  6. TACROLIMUS [Concomitant]
     Active Substance: TACROLIMUS
  7. VITAMINS [Concomitant]
     Active Substance: VITAMINS
  8. ALLOPURINOL [Concomitant]
     Active Substance: ALLOPURINOL
  9. EZETIMIBE [Concomitant]
     Active Substance: EZETIMIBE
  10. GABAPENTIN [Concomitant]
  11. FLONASE [Concomitant]
     Active Substance: FLUTICASONE PROPIONATE
  12. EPOETIN [Concomitant]
  13. PREDNISONE [Concomitant]
  14. VITAMIN D2 [Concomitant]
     Active Substance: ERGOCALCIFEROL
  15. albuterol [Concomitant]
  16. ALENDRONATE [Suspect]
     Active Substance: ALENDRONATE SODIUM
  17. ESTRADIOL VAGINAL [Concomitant]
     Active Substance: ESTRADIOL
  18. aspirin [Concomitant]

REACTIONS (4)
  - Hyponatraemia [None]
  - Hypervolaemia [None]
  - Condition aggravated [None]
  - Right ventricular failure [None]

NARRATIVE: CASE EVENT DATE: 20231227
